FAERS Safety Report 5913246-8 (Version None)
Quarter: 2008Q4

REPORT INFORMATION
  Report Type: 
  Country: None (occurrence: None)
  Receive Date: 20081007
  Receipt Date: 20080924
  Transmission Date: 20090506
  Serious: Yes (Death)
  Sender: FDA-Public Use
  Company Number: CQT2-2007-00021

PATIENT
  Age: 51 Year
  Sex: Male

DRUGS (6)
  1. ANAGRELIDE HCL [Suspect]
     Indication: ESSENTIAL THROMBOCYTHAEMIA
     Dosage: SEE IMAGE
     Route: 048
     Dates: start: 20020226, end: 20061120
  2. ANAGRELIDE HCL [Suspect]
     Indication: ESSENTIAL THROMBOCYTHAEMIA
     Dosage: SEE IMAGE
     Route: 048
     Dates: start: 20061120, end: 20070521
  3. ANAGRELIDE HCL [Suspect]
     Indication: ESSENTIAL THROMBOCYTHAEMIA
     Dosage: SEE IMAGE
     Route: 048
     Dates: start: 20070522, end: 20071114
  4. ANAGRELIDE HCL [Suspect]
     Indication: ESSENTIAL THROMBOCYTHAEMIA
     Dosage: SEE IMAGE
     Route: 048
     Dates: start: 20071115
  5. ACETYLSALICYLIC ACID SRT [Suspect]
     Indication: ESSENTIAL THROMBOCYTHAEMIA
     Dosage: 75 MG, 1X/DAY:QD, ORAL
     Route: 048
     Dates: start: 20010101
  6. LEVOTHYROXINE SODIUM [Concomitant]

REACTIONS (1)
  - CEREBRAL HAEMORRHAGE [None]
